FAERS Safety Report 7310339-8 (Version None)
Quarter: 2011Q1

REPORT INFORMATION
  Report Type: 
  Country: None (occurrence: None)
  Receive Date: 20110224
  Receipt Date: 20110216
  Transmission Date: 20110831
  Serious: Yes (Hospitalization)
  Sender: FDA-Public Use
  Company Number: JP-BRISTOL-MYERS SQUIBB COMPANY-15535867

PATIENT
  Age: 51 Year
  Sex: Male

DRUGS (4)
  1. URINORM [Concomitant]
     Indication: GOUT
     Route: 048
     Dates: start: 19930223
  2. AMLODIPINE BESYLATE [Suspect]
     Indication: ESSENTIAL HYPERTENSION
     Dosage: IRBESARTAN + AMLODIPINE BESYLATE
     Route: 048
     Dates: start: 20101126, end: 20110202
  3. IRBESARTAN [Suspect]
     Indication: ESSENTIAL HYPERTENSION
     Dosage: IRBESARTAN + AMLODIPINE BESYLATE:100MG STARTED,IRBESARTAN ALSO TAKEN AS CONMED 7OCT2010-25NOV2010
     Route: 048
     Dates: start: 20101126, end: 20110202
  4. BLOPRESS [Concomitant]
     Indication: ESSENTIAL HYPERTENSION
     Dates: start: 20060329, end: 20101005

REACTIONS (1)
  - CEREBRAL INFARCTION [None]
